FAERS Safety Report 24941753 (Version 3)
Quarter: 2025Q1

REPORT INFORMATION
  Report Type: Spontaneous
  Country: US (occurrence: US)
  Receive Date: 20250207
  Receipt Date: 20250327
  Transmission Date: 20250409
  Serious: No
  Sender: KARYOPHARM THERAPEUTICS
  Company Number: US-KARYOPHARM-2025KPT000127

PATIENT

DRUGS (12)
  1. XPOVIO [Suspect]
     Active Substance: SELINEXOR
     Indication: Plasma cell myeloma
     Route: 048
     Dates: start: 20250121
  2. XPOVIO [Suspect]
     Active Substance: SELINEXOR
     Route: 048
     Dates: start: 20250122
  3. ACYCLOVIR [Concomitant]
     Active Substance: ACYCLOVIR
  4. AMITRIPTYLINE [Concomitant]
     Active Substance: AMITRIPTYLINE
  5. BUSPIRONE [Concomitant]
     Active Substance: BUSPIRONE HYDROCHLORIDE
  6. DEXAMETHASONE [Concomitant]
     Active Substance: DEXAMETHASONE
  7. LIDOCAINE 5% EXTRA [Concomitant]
  8. LISINOPRIL [Concomitant]
     Active Substance: LISINOPRIL
  9. MIRTAZAPINE [Concomitant]
     Active Substance: MIRTAZAPINE
  10. OLANZAPINE [Concomitant]
     Active Substance: OLANZAPINE
  11. ONDANSETRON [Concomitant]
     Active Substance: ONDANSETRON
  12. ASPIRIN [Concomitant]
     Active Substance: ASPIRIN

REACTIONS (3)
  - White blood cell count decreased [Unknown]
  - Diarrhoea [Unknown]
  - Red blood cell count decreased [Unknown]
